FAERS Safety Report 14310070 (Version 8)
Quarter: 2025Q4

REPORT INFORMATION
  Report Type: Spontaneous
  Country: EU (occurrence: EU)
  Receive Date: 20171220
  Receipt Date: 20251017
  Transmission Date: 20260117
  Serious: Yes (Life-Threatening, Hospitalization, Other)
  Sender: MYLAN
  Company Number: EU-PFIZER INC-2017516936

PATIENT
  Age: 5 Year
  Sex: Male

DRUGS (132)
  1. METHOTREXATE [Suspect]
     Active Substance: METHOTREXATE
     Indication: B precursor type acute leukaemia
     Dosage: UNK, BLOCK IA, MAINTENANCE: 0.5-0.7 MG/KG ONCE WEEKLY
     Route: 037
  2. METHOTREXATE [Suspect]
     Active Substance: METHOTREXATE
     Dosage: UNK, BLOCK IA, MAINTENANCE: 0.5-0.7 MG/KG ONCE WEEKLY
  3. METHOTREXATE [Suspect]
     Active Substance: METHOTREXATE
     Dosage: UNK, BLOCK IA, MAINTENANCE: 0.5-0.7 MG/KG ONCE WEEKLY
  4. METHOTREXATE [Suspect]
     Active Substance: METHOTREXATE
     Dosage: UNK, BLOCK IA, MAINTENANCE: 0.5-0.7 MG/KG ONCE WEEKLY
     Route: 037
  5. METHOTREXATE [Suspect]
     Active Substance: METHOTREXATE
     Dosage: UNK, BLOCK IB
     Route: 037
  6. METHOTREXATE [Suspect]
     Active Substance: METHOTREXATE
     Dosage: UNK, BLOCK IB
  7. METHOTREXATE [Suspect]
     Active Substance: METHOTREXATE
     Dosage: UNK, BLOCK IB
  8. METHOTREXATE [Suspect]
     Active Substance: METHOTREXATE
     Dosage: UNK, BLOCK IB
     Route: 037
  9. METHOTREXATE [Suspect]
     Active Substance: METHOTREXATE
     Dosage: 0.5-0.7 MG/KG ONCE WEEKLY
  10. METHOTREXATE [Suspect]
     Active Substance: METHOTREXATE
     Dosage: 0.5-0.7 MG/KG ONCE WEEKLY
  11. METHOTREXATE [Suspect]
     Active Substance: METHOTREXATE
     Dosage: 0.5-0.7 MG/KG ONCE WEEKLY
     Route: 037
  12. METHOTREXATE [Suspect]
     Active Substance: METHOTREXATE
     Dosage: 0.5-0.7 MG/KG ONCE WEEKLY
     Route: 037
  13. METHOTREXATE [Suspect]
     Active Substance: METHOTREXATE
     Dosage: UNK, BLOCK II A
  14. METHOTREXATE [Suspect]
     Active Substance: METHOTREXATE
     Dosage: UNK, BLOCK II A
  15. METHOTREXATE [Suspect]
     Active Substance: METHOTREXATE
     Dosage: UNK, BLOCK II A
     Route: 037
  16. METHOTREXATE [Suspect]
     Active Substance: METHOTREXATE
     Dosage: UNK, BLOCK II A
     Route: 037
  17. DOXORUBICIN [Suspect]
     Active Substance: DOXORUBICIN
     Indication: B precursor type acute leukaemia
     Dosage: UNK, BLOCK IIA
  18. DOXORUBICIN [Suspect]
     Active Substance: DOXORUBICIN
     Dosage: UNK, BLOCK IIA
     Route: 065
  19. DOXORUBICIN [Suspect]
     Active Substance: DOXORUBICIN
     Dosage: UNK, BLOCK IIA
     Route: 065
  20. DOXORUBICIN [Suspect]
     Active Substance: DOXORUBICIN
     Dosage: UNK, BLOCK IIA
  21. ONCASPAR [Suspect]
     Active Substance: PEGASPARGASE
     Indication: B precursor type acute leukaemia
     Dosage: 2500 U/M2, DAY 12 AND DAY 26 OF BLOCK IA
     Route: 042
  22. ONCASPAR [Suspect]
     Active Substance: PEGASPARGASE
     Dosage: 2500 U/M2, DAY 12 AND DAY 26 OF BLOCK IA
  23. ONCASPAR [Suspect]
     Active Substance: PEGASPARGASE
     Dosage: 2500 U/M2, DAY 12 AND DAY 26 OF BLOCK IA
  24. ONCASPAR [Suspect]
     Active Substance: PEGASPARGASE
     Dosage: 2500 U/M2, DAY 12 AND DAY 26 OF BLOCK IA
     Route: 042
  25. ONCASPAR [Suspect]
     Active Substance: PEGASPARGASE
     Dosage: 2500 U/M2, DAY 12 AND DA8 OF BLOCK IIA
     Route: 042
  26. ONCASPAR [Suspect]
     Active Substance: PEGASPARGASE
     Dosage: 2500 U/M2, DAY 12 AND DA8 OF BLOCK IIA
  27. ONCASPAR [Suspect]
     Active Substance: PEGASPARGASE
     Dosage: 2500 U/M2, DAY 12 AND DA8 OF BLOCK IIA
  28. ONCASPAR [Suspect]
     Active Substance: PEGASPARGASE
     Dosage: 2500 U/M2, DAY 12 AND DA8 OF BLOCK IIA
     Route: 042
  29. CYCLOPHOSPHAMIDE [Suspect]
     Active Substance: CYCLOPHOSPHAMIDE
     Indication: Acute lymphocytic leukaemia
     Dosage: UNK, BLOCK IB
  30. CYCLOPHOSPHAMIDE [Suspect]
     Active Substance: CYCLOPHOSPHAMIDE
     Dosage: UNK, BLOCK IB
     Route: 065
  31. CYCLOPHOSPHAMIDE [Suspect]
     Active Substance: CYCLOPHOSPHAMIDE
     Dosage: UNK, BLOCK IB
     Route: 065
  32. CYCLOPHOSPHAMIDE [Suspect]
     Active Substance: CYCLOPHOSPHAMIDE
     Dosage: UNK, BLOCK IB
  33. THIOGUANINE [Suspect]
     Active Substance: THIOGUANINE
     Indication: B precursor type acute leukaemia
     Dosage: UNK
  34. THIOGUANINE [Suspect]
     Active Substance: THIOGUANINE
     Dosage: UNK
     Route: 065
  35. THIOGUANINE [Suspect]
     Active Substance: THIOGUANINE
     Dosage: UNK
     Route: 065
  36. THIOGUANINE [Suspect]
     Active Substance: THIOGUANINE
     Dosage: UNK
  37. MERCAPTOPURINE [Suspect]
     Active Substance: MERCAPTOPURINE
     Indication: Acute lymphocytic leukaemia
     Dosage: UNK, BLOCK IB
  38. MERCAPTOPURINE [Suspect]
     Active Substance: MERCAPTOPURINE
     Indication: B precursor type acute leukaemia
     Dosage: UNK, BLOCK IB
  39. MERCAPTOPURINE [Suspect]
     Active Substance: MERCAPTOPURINE
     Dosage: UNK, BLOCK IB
     Route: 065
  40. MERCAPTOPURINE [Suspect]
     Active Substance: MERCAPTOPURINE
     Dosage: UNK, BLOCK IB
     Route: 065
  41. MERCAPTOPURINE [Suspect]
     Active Substance: MERCAPTOPURINE
     Dosage: 1.5 MILLIGRAM/KILOGRAM, QD (DAILY; MAINTENANCE)
     Dates: start: 2014, end: 2014
  42. MERCAPTOPURINE [Suspect]
     Active Substance: MERCAPTOPURINE
     Dosage: 1.5 MILLIGRAM/KILOGRAM, QD (DAILY; MAINTENANCE)
     Dates: start: 2014, end: 2014
  43. MERCAPTOPURINE [Suspect]
     Active Substance: MERCAPTOPURINE
     Dosage: 1.5 MILLIGRAM/KILOGRAM, QD (DAILY; MAINTENANCE)
     Route: 065
     Dates: start: 2014, end: 2014
  44. MERCAPTOPURINE [Suspect]
     Active Substance: MERCAPTOPURINE
     Dosage: 1.5 MILLIGRAM/KILOGRAM, QD (DAILY; MAINTENANCE)
     Route: 065
     Dates: start: 2014, end: 2014
  45. PREDNISONE [Suspect]
     Active Substance: PREDNISONE
     Indication: Acute lymphocytic leukaemia
     Dosage: UNK, BLOCK IA (STOP DATE:2014)
  46. PREDNISONE [Suspect]
     Active Substance: PREDNISONE
     Indication: B precursor type acute leukaemia
     Dosage: UNK, BLOCK IA (STOP DATE:2014)
  47. PREDNISONE [Suspect]
     Active Substance: PREDNISONE
     Dosage: UNK, BLOCK IA (STOP DATE:2014)
     Route: 065
  48. PREDNISONE [Suspect]
     Active Substance: PREDNISONE
     Dosage: UNK, BLOCK IA (STOP DATE:2014)
     Route: 065
  49. PREDNISONE [Suspect]
     Active Substance: PREDNISONE
     Dosage: UNK
  50. PREDNISONE [Suspect]
     Active Substance: PREDNISONE
     Dosage: UNK
  51. PREDNISONE [Suspect]
     Active Substance: PREDNISONE
     Dosage: UNK
     Route: 065
  52. PREDNISONE [Suspect]
     Active Substance: PREDNISONE
     Dosage: UNK
     Route: 065
  53. DEXAMETHASONE [Suspect]
     Active Substance: DEXAMETHASONE
     Indication: Acute lymphocytic leukaemia
     Dosage: UNK UNK, QD
  54. DEXAMETHASONE [Suspect]
     Active Substance: DEXAMETHASONE
     Indication: B precursor type acute leukaemia
     Dosage: UNK UNK, QD
  55. DEXAMETHASONE [Suspect]
     Active Substance: DEXAMETHASONE
     Dosage: UNK UNK, QD
     Route: 065
  56. DEXAMETHASONE [Suspect]
     Active Substance: DEXAMETHASONE
     Dosage: UNK UNK, QD
     Route: 065
  57. DEXAMETHASONE [Suspect]
     Active Substance: DEXAMETHASONE
     Dosage: 10 MILLIGRAM/SQ. METER, QD
     Dates: start: 201501, end: 201502
  58. DEXAMETHASONE [Suspect]
     Active Substance: DEXAMETHASONE
     Dosage: 10 MILLIGRAM/SQ. METER, QD
     Dates: start: 201501, end: 201502
  59. DEXAMETHASONE [Suspect]
     Active Substance: DEXAMETHASONE
     Dosage: 10 MILLIGRAM/SQ. METER, QD
     Route: 065
     Dates: start: 201501, end: 201502
  60. DEXAMETHASONE [Suspect]
     Active Substance: DEXAMETHASONE
     Dosage: 10 MILLIGRAM/SQ. METER, QD
     Route: 065
     Dates: start: 201501, end: 201502
  61. VINCRISTINE [Suspect]
     Active Substance: VINCRISTINE
     Indication: Acute lymphocytic leukaemia
     Dosage: UNK, BLOCK IA
  62. VINCRISTINE [Suspect]
     Active Substance: VINCRISTINE
     Indication: B precursor type acute leukaemia
     Dosage: UNK, BLOCK IA
  63. VINCRISTINE [Suspect]
     Active Substance: VINCRISTINE
     Dosage: UNK, BLOCK IA
     Route: 065
  64. VINCRISTINE [Suspect]
     Active Substance: VINCRISTINE
     Dosage: UNK, BLOCK IA
     Route: 065
  65. VINCRISTINE [Suspect]
     Active Substance: VINCRISTINE
     Dosage: UNK, BLOCK IIA
  66. VINCRISTINE [Suspect]
     Active Substance: VINCRISTINE
     Dosage: UNK, BLOCK IIA
  67. VINCRISTINE [Suspect]
     Active Substance: VINCRISTINE
     Dosage: UNK, BLOCK IIA
     Route: 065
  68. VINCRISTINE [Suspect]
     Active Substance: VINCRISTINE
     Dosage: UNK, BLOCK IIA
     Route: 065
  69. DAUNORUBICIN HYDROCHLORIDE [Suspect]
     Active Substance: DAUNORUBICIN HYDROCHLORIDE
     Indication: Acute lymphocytic leukaemia
     Dosage: 4 DOSES, BLOCK IA
  70. DAUNORUBICIN HYDROCHLORIDE [Suspect]
     Active Substance: DAUNORUBICIN HYDROCHLORIDE
     Indication: B precursor type acute leukaemia
     Dosage: 4 DOSES, BLOCK IA
     Route: 065
  71. DAUNORUBICIN HYDROCHLORIDE [Suspect]
     Active Substance: DAUNORUBICIN HYDROCHLORIDE
     Dosage: 4 DOSES, BLOCK IA
     Route: 065
  72. DAUNORUBICIN HYDROCHLORIDE [Suspect]
     Active Substance: DAUNORUBICIN HYDROCHLORIDE
     Dosage: 4 DOSES, BLOCK IA
  73. CYTARABINE [Suspect]
     Active Substance: CYTARABINE
     Indication: Acute lymphocytic leukaemia
     Dosage: UNK, BLOCK IB
     Route: 065
  74. CYTARABINE [Suspect]
     Active Substance: CYTARABINE
     Indication: B precursor type acute leukaemia
     Dosage: UNK, BLOCK IB
     Route: 065
  75. CYTARABINE [Suspect]
     Active Substance: CYTARABINE
     Dosage: UNK, BLOCK IB
     Route: 065
  76. CYTARABINE [Suspect]
     Active Substance: CYTARABINE
     Dosage: UNK, BLOCK IB
     Route: 065
  77. AMBISOME [Suspect]
     Active Substance: AMPHOTERICIN B
     Indication: Gastric infection
     Dosage: UNK
  78. AMBISOME [Suspect]
     Active Substance: AMPHOTERICIN B
     Indication: Pulmonary mucormycosis
     Dosage: UNK
  79. AMBISOME [Suspect]
     Active Substance: AMPHOTERICIN B
     Dosage: UNK
     Route: 065
  80. AMBISOME [Suspect]
     Active Substance: AMPHOTERICIN B
     Dosage: UNK
     Route: 065
  81. AMBISOME [Suspect]
     Active Substance: AMPHOTERICIN B
     Dosage: 10 MILLIGRAM/KILOGRAM, QD
  82. AMBISOME [Suspect]
     Active Substance: AMPHOTERICIN B
     Dosage: 10 MILLIGRAM/KILOGRAM, QD
  83. AMBISOME [Suspect]
     Active Substance: AMPHOTERICIN B
     Dosage: 10 MILLIGRAM/KILOGRAM, QD
     Route: 065
  84. AMBISOME [Suspect]
     Active Substance: AMPHOTERICIN B
     Dosage: 10 MILLIGRAM/KILOGRAM, QD
     Route: 065
  85. AMBISOME [Suspect]
     Active Substance: AMPHOTERICIN B
     Dosage: 1 MILLIGRAM/KILOGRAM, QD
  86. AMBISOME [Suspect]
     Active Substance: AMPHOTERICIN B
     Dosage: 1 MILLIGRAM/KILOGRAM, QD
     Route: 065
  87. AMBISOME [Suspect]
     Active Substance: AMPHOTERICIN B
     Dosage: 1 MILLIGRAM/KILOGRAM, QD
  88. AMBISOME [Suspect]
     Active Substance: AMPHOTERICIN B
     Dosage: 1 MILLIGRAM/KILOGRAM, QD
     Route: 065
  89. POSACONAZOLE [Concomitant]
     Active Substance: POSACONAZOLE
     Indication: Antifungal treatment
     Dosage: 15 MILLIGRAM/KILOGRAM, QD
     Dates: start: 201504, end: 201505
  90. POSACONAZOLE [Concomitant]
     Active Substance: POSACONAZOLE
     Dosage: 15 MILLIGRAM/KILOGRAM, QD
     Dates: start: 201504, end: 201505
  91. POSACONAZOLE [Concomitant]
     Active Substance: POSACONAZOLE
     Dosage: 15 MILLIGRAM/KILOGRAM, QD
     Route: 065
     Dates: start: 201504, end: 201505
  92. POSACONAZOLE [Concomitant]
     Active Substance: POSACONAZOLE
     Dosage: 15 MILLIGRAM/KILOGRAM, QD
     Route: 065
     Dates: start: 201504, end: 201505
  93. POSACONAZOLE [Concomitant]
     Active Substance: POSACONAZOLE
     Dosage: 20 MG/KG, DAILY (INCREASED DOSAGE OF 20 MG/KG/DAY)
     Dates: start: 201604, end: 201605
  94. POSACONAZOLE [Concomitant]
     Active Substance: POSACONAZOLE
     Dosage: 20 MG/KG, DAILY (INCREASED DOSAGE OF 20 MG/KG/DAY)
     Dates: start: 201604, end: 201605
  95. POSACONAZOLE [Concomitant]
     Active Substance: POSACONAZOLE
     Dosage: 20 MG/KG, DAILY (INCREASED DOSAGE OF 20 MG/KG/DAY)
     Route: 065
     Dates: start: 201604, end: 201605
  96. POSACONAZOLE [Concomitant]
     Active Substance: POSACONAZOLE
     Dosage: 20 MG/KG, DAILY (INCREASED DOSAGE OF 20 MG/KG/DAY)
     Route: 065
     Dates: start: 201604, end: 201605
  97. VORICONAZOLE [Concomitant]
     Active Substance: VORICONAZOLE
     Indication: Mucormycosis
     Dosage: 8 MILLIGRAM/KILOGRAM, QD
     Route: 065
     Dates: start: 201503, end: 201504
  98. VORICONAZOLE [Concomitant]
     Active Substance: VORICONAZOLE
     Indication: Antifungal treatment
     Dosage: 8 MILLIGRAM/KILOGRAM, QD
     Dates: start: 201503, end: 201504
  99. VORICONAZOLE [Concomitant]
     Active Substance: VORICONAZOLE
     Indication: Aspergillus infection
     Dosage: 8 MILLIGRAM/KILOGRAM, QD
     Dates: start: 201503, end: 201504
  100. VORICONAZOLE [Concomitant]
     Active Substance: VORICONAZOLE
     Dosage: 8 MILLIGRAM/KILOGRAM, QD
     Route: 065
     Dates: start: 201503, end: 201504
  101. VORICONAZOLE [Concomitant]
     Active Substance: VORICONAZOLE
     Dosage: 8 MILLIGRAM/KILOGRAM, QD
     Route: 065
     Dates: start: 20150317, end: 20150402
  102. VORICONAZOLE [Concomitant]
     Active Substance: VORICONAZOLE
     Dosage: 8 MILLIGRAM/KILOGRAM, QD
     Dates: start: 20150317, end: 20150402
  103. VORICONAZOLE [Concomitant]
     Active Substance: VORICONAZOLE
     Dosage: 8 MILLIGRAM/KILOGRAM, QD
     Dates: start: 20150317, end: 20150402
  104. VORICONAZOLE [Concomitant]
     Active Substance: VORICONAZOLE
     Dosage: 8 MILLIGRAM/KILOGRAM, QD
     Route: 065
     Dates: start: 20150317, end: 20150402
  105. CASPOFUNGIN [Concomitant]
     Active Substance: CASPOFUNGIN
     Indication: Antifungal treatment
     Dosage: 1 MILLIGRAM/KILOGRAM, QD
     Route: 065
     Dates: start: 201502, end: 201503
  106. CASPOFUNGIN [Concomitant]
     Active Substance: CASPOFUNGIN
     Dosage: 1 MILLIGRAM/KILOGRAM, QD
     Dates: start: 201502, end: 201503
  107. CASPOFUNGIN [Concomitant]
     Active Substance: CASPOFUNGIN
     Dosage: 1 MILLIGRAM/KILOGRAM, QD
     Dates: start: 201502, end: 201503
  108. CASPOFUNGIN [Concomitant]
     Active Substance: CASPOFUNGIN
     Dosage: 1 MILLIGRAM/KILOGRAM, QD
     Route: 065
     Dates: start: 201502, end: 201503
  109. CASPOFUNGIN [Concomitant]
     Active Substance: CASPOFUNGIN
     Dosage: UNK
     Route: 065
  110. CASPOFUNGIN [Concomitant]
     Active Substance: CASPOFUNGIN
     Dosage: UNK
  111. CASPOFUNGIN [Concomitant]
     Active Substance: CASPOFUNGIN
     Dosage: UNK
  112. CASPOFUNGIN [Concomitant]
     Active Substance: CASPOFUNGIN
     Dosage: UNK
     Route: 065
  113. CASPOFUNGIN [Concomitant]
     Active Substance: CASPOFUNGIN
     Dosage: UNK
     Route: 065
     Dates: start: 20150220, end: 20150312
  114. CASPOFUNGIN [Concomitant]
     Active Substance: CASPOFUNGIN
     Dosage: UNK
     Route: 065
     Dates: start: 20150220, end: 20150312
  115. CASPOFUNGIN [Concomitant]
     Active Substance: CASPOFUNGIN
     Dosage: UNK
     Dates: start: 20150220, end: 20150312
  116. CASPOFUNGIN [Concomitant]
     Active Substance: CASPOFUNGIN
     Dosage: UNK
     Dates: start: 20150220, end: 20150312
  117. LINEZOLID [Concomitant]
     Active Substance: LINEZOLID
     Indication: Lung infiltration
     Dosage: UNK
  118. LINEZOLID [Concomitant]
     Active Substance: LINEZOLID
     Dosage: UNK
     Route: 065
  119. LINEZOLID [Concomitant]
     Active Substance: LINEZOLID
     Dosage: UNK
     Route: 065
  120. LINEZOLID [Concomitant]
     Active Substance: LINEZOLID
     Dosage: UNK
  121. CEFTAZIDIME [Concomitant]
     Active Substance: CEFTAZIDIME
     Indication: Lung infiltration
     Dosage: UNK
  122. CEFTAZIDIME [Concomitant]
     Active Substance: CEFTAZIDIME
     Dosage: UNK
     Route: 065
  123. CEFTAZIDIME [Concomitant]
     Active Substance: CEFTAZIDIME
     Dosage: UNK
     Route: 065
  124. CEFTAZIDIME [Concomitant]
     Active Substance: CEFTAZIDIME
     Dosage: UNK
  125. METHOTREXATE [Concomitant]
     Active Substance: METHOTREXATE
     Dosage: 0.5-0.7 MG/KG ONCE WEEKLY
  126. METHOTREXATE [Concomitant]
     Active Substance: METHOTREXATE
     Dosage: 0.5-0.7 MG/KG ONCE WEEKLY
     Route: 065
  127. METHOTREXATE [Concomitant]
     Active Substance: METHOTREXATE
     Dosage: 0.5-0.7 MG/KG ONCE WEEKLY
     Route: 065
  128. METHOTREXATE [Concomitant]
     Active Substance: METHOTREXATE
     Dosage: 0.5-0.7 MG/KG ONCE WEEKLY
  129. AMPHOTERICIN B [Concomitant]
     Active Substance: AMPHOTERICIN B
     Indication: Gastric infection
     Dosage: UNK
  130. AMPHOTERICIN B [Concomitant]
     Active Substance: AMPHOTERICIN B
     Dosage: UNK
     Route: 065
  131. AMPHOTERICIN B [Concomitant]
     Active Substance: AMPHOTERICIN B
     Dosage: UNK
     Route: 065
  132. AMPHOTERICIN B [Concomitant]
     Active Substance: AMPHOTERICIN B
     Dosage: UNK

REACTIONS (8)
  - Drug ineffective [Unknown]
  - No adverse event [Unknown]
  - Hypokalaemia [Unknown]
  - Pulmonary mucormycosis [Recovered/Resolved]
  - Aspergillus infection [Recovering/Resolving]
  - Mucormycosis [Recovered/Resolved]
  - Off label use [Recovered/Resolved]
  - Treatment noncompliance [Unknown]

NARRATIVE: CASE EVENT DATE: 20150201
